FAERS Safety Report 6942225-7 (Version None)
Quarter: 2010Q3

REPORT INFORMATION
  Report Type: 
  Country: None (occurrence: None)
  Receive Date: 20100820
  Receipt Date: 20100817
  Transmission Date: 20110219
  Serious: Yes (Hospitalization)
  Sender: FDA-Public Use
  Company Number: TPA2010A04262

PATIENT
  Age: 45 Year
  Sex: Female
  Weight: 84.8226 kg

DRUGS (2)
  1. PIOGLITAZONE HCL [Suspect]
     Indication: TYPE 2 DIABETES MELLITUS
     Dosage: 30 MG, 1 IN 1 D, ORAL
     Route: 048
     Dates: start: 20090921, end: 20100608
  2. DUTAGLIPTIN (ALL OTHER THERAPEUTIC PRODUCTS) [Suspect]
     Indication: TYPE 2 DIABETES MELLITUS
     Dates: start: 20100209

REACTIONS (1)
  - ABDOMINAL HERNIA [None]
